FAERS Safety Report 9424188 (Version 2)
Quarter: 2013Q4

REPORT INFORMATION
  Report Type: Spontaneous
  Country: US (occurrence: US)
  Receive Date: 20130729
  Receipt Date: 20131209
  Transmission Date: 20140711
  Serious: Yes (Other)
  Sender: FDA-Public Use
  Company Number: US-RANBAXY-2013US-71689

PATIENT
  Age: 59 Year
  Sex: Male

DRUGS (3)
  1. ATORVASTATIN [Suspect]
     Indication: PRODUCT USED FOR UNKNOWN INDICATION
     Dosage: 20 MG, DAILY
     Route: 065
     Dates: start: 200604
  2. GEMFIBROZIL [Interacting]
     Indication: PRODUCT USED FOR UNKNOWN INDICATION
     Dosage: 600 MG, BID
     Route: 065
     Dates: start: 2006
  3. OMEPRAZOLE [Interacting]
     Indication: OESOPHAGITIS
     Dosage: 20 MG, DAILY
     Route: 065
     Dates: start: 201009

REACTIONS (2)
  - Polymyositis [Recovered/Resolved]
  - Drug interaction [Recovered/Resolved]
